FAERS Safety Report 11660055 (Version 1)
Quarter: 2015Q4

REPORT INFORMATION
  Report Type: Other
  Country: JP (occurrence: JP)
  Receive Date: 20151026
  Receipt Date: 20151026
  Transmission Date: 20160304
  Serious: Yes (Other)
  Sender: FDA-Public Use
  Company Number: JP-DEP_12904_2015

PATIENT

DRUGS (1)
  1. TAPENTA (TAPENTADOL) [Suspect]
     Active Substance: TAPENTADOL HYDROCHLORIDE
     Indication: CANCER PAIN
     Dosage: DF
     Route: 048

REACTIONS (4)
  - Delirium [Unknown]
  - Thirst [Unknown]
  - Nausea [Unknown]
  - Somnolence [Unknown]
